FAERS Safety Report 18983717 (Version 2)
Quarter: 2021Q2

REPORT INFORMATION
  Report Type: Spontaneous
  Country: US (occurrence: US)
  Receive Date: 20210309
  Receipt Date: 20210507
  Transmission Date: 20210717
  Serious: Yes (Hospitalization, Other)
  Sender: FDA-Public Use
  Company Number: US-TEVA-2021-US-1887158

PATIENT
  Age: 57 Year
  Sex: Female

DRUGS (16)
  1. VALSARTAN/HYDROCHLOROTHIAZIDE TEVA [Suspect]
     Active Substance: HYDROCHLOROTHIAZIDE\VALSARTAN
     Dosage: 160?12.5MG
     Route: 048
     Dates: start: 20150429, end: 20150529
  2. DIOVAN HCT [Suspect]
     Active Substance: HYDROCHLOROTHIAZIDE\VALSARTAN
     Indication: HYPERTENSION
     Dosage: 160?12.5MG
     Route: 048
     Dates: start: 20120508, end: 20120607
  3. LOSARTAN HCTZ SANDOZ [Suspect]
     Active Substance: HYDROCHLOROTHIAZIDE\LOSARTAN
     Indication: HYPERTENSION
     Dosage: 100?12.5MG
     Route: 048
     Dates: start: 20150915, end: 20151015
  4. LOSARTAN LUPIN [Suspect]
     Active Substance: LOSARTAN
     Indication: HYPERTENSION
     Route: 048
     Dates: start: 20140902, end: 20141002
  5. DIOVAN [Suspect]
     Active Substance: VALSARTAN
     Route: 048
     Dates: start: 20121220, end: 20140712
  6. INSULIN [Concomitant]
     Active Substance: INSULIN NOS
     Indication: DIABETES MELLITUS
  7. VALSARTAN OHM LABORATORIES [Suspect]
     Active Substance: VALSARTAN
     Route: 048
     Dates: start: 20141122, end: 20141222
  8. LOSARTAN LUPIN [Suspect]
     Active Substance: LOSARTAN
     Route: 048
     Dates: start: 20141120, end: 20141220
  9. LEVOTHYROXINE. [Concomitant]
     Active Substance: LEVOTHYROXINE
  10. VALSARTAN/HYDROCHLOROTHIAZIDE TEVA [Suspect]
     Active Substance: HYDROCHLOROTHIAZIDE\VALSARTAN
     Indication: HYPERTENSION
     Dosage: 160?12.5MG
     Route: 048
     Dates: start: 20141029, end: 20141128
  11. DIOVAN [Suspect]
     Active Substance: VALSARTAN
     Dates: start: 20120701, end: 20121025
  12. LOSARTAN LUPIN [Suspect]
     Active Substance: LOSARTAN
     Route: 048
     Dates: start: 20141229, end: 20150503
  13. METFORMIN [Concomitant]
     Active Substance: METFORMIN HYDROCHLORIDE
     Indication: DIABETES MELLITUS
  14. DIOVAN [Suspect]
     Active Substance: VALSARTAN
     Indication: HYPERTENSION
     Route: 048
     Dates: start: 20120214, end: 20120605
  15. VALSARTAN OHM LABORATORIES [Suspect]
     Active Substance: VALSARTAN
     Indication: HYPERTENSION
     Route: 048
     Dates: start: 20140822, end: 20141120
  16. VALSARTAN OHM LABORATORIES [Suspect]
     Active Substance: VALSARTAN
     Route: 048

REACTIONS (3)
  - Hepatic cancer [Not Recovered/Not Resolved]
  - Pancreatic carcinoma [Not Recovered/Not Resolved]
  - Gastrointestinal carcinoma [Not Recovered/Not Resolved]
